FAERS Safety Report 17640972 (Version 1)
Quarter: 2020Q2

REPORT INFORMATION
  Report Type: Spontaneous
  Country: US (occurrence: US)
  Receive Date: 20200407
  Receipt Date: 20200407
  Transmission Date: 20200713
  Serious: Yes (Death)
  Sender: FDA-Public Use
  Company Number: US-AGG-03-2020-2245

PATIENT
  Age: 49 Year
  Sex: Male

DRUGS (6)
  1. PROTAMINE [Concomitant]
     Active Substance: PROTAMINE
     Indication: PROCOAGULANT THERAPY
  2. TICAGRELOR. [Concomitant]
     Active Substance: TICAGRELOR
  3. HEPARIN [Concomitant]
     Active Substance: HEPARIN SODIUM
     Route: 041
  4. ASPIRIN. [Concomitant]
     Active Substance: ASPIRIN
  5. MULTIPLE BLOOD PRODUCT TRANSFUSIONS [Concomitant]
  6. AGGRASTAT [Suspect]
     Active Substance: TIROFIBAN HYDROCHLORIDE
     Indication: ANTIPLATELET THERAPY
     Route: 041

REACTIONS (2)
  - Pulseless electrical activity [Fatal]
  - Pulmonary alveolar haemorrhage [Fatal]
